FAERS Safety Report 8556476-1 (Version None)
Quarter: 2012Q3

REPORT INFORMATION
  Report Type: 
  Country: None (occurrence: None)
  Receive Date: 20120801
  Receipt Date: 20120730
  Transmission Date: 20120928
  Serious: Yes (Other)
  Sender: FDA-Public Use
  Company Number: PHFR2012GB004253

PATIENT
  Age: 77 Year
  Sex: Male
  Weight: 85 kg

DRUGS (4)
  1. SIMVASTATIN [Concomitant]
     Dosage: 40 MG
     Dates: start: 20040802
  2. DECAPEPTYL - SLOW RELEASE [Concomitant]
     Dosage: 11.25 MG
     Dates: start: 20090320
  3. LANSOPRAZOLE [Concomitant]
     Dosage: 15 MG
     Dates: start: 20110131
  4. ZOMETA [Suspect]
     Dosage: UNK
     Dates: start: 20090403, end: 20110401

REACTIONS (2)
  - OSTEONECROSIS OF JAW [None]
  - IMPAIRED HEALING [None]
